FAERS Safety Report 9266756 (Version 1)
Quarter: 2013Q2

REPORT INFORMATION
  Report Type: Spontaneous
  Country: US (occurrence: US)
  Receive Date: 20130502
  Receipt Date: 20130502
  Transmission Date: 20140414
  Serious: Yes (Other)
  Sender: FDA-Public Use
  Company Number: US-PFIZER INC-2013132496

PATIENT
  Age: 61 Year
  Sex: Male

DRUGS (1)
  1. INDERAL [Suspect]
     Dosage: UNK

REACTIONS (2)
  - Loss of consciousness [Unknown]
  - Drug hypersensitivity [Unknown]
